FAERS Safety Report 19270635 (Version 1)
Quarter: 2021Q2

REPORT INFORMATION
  Report Type: Spontaneous
  Country: US (occurrence: US)
  Receive Date: 20210518
  Receipt Date: 20210518
  Transmission Date: 20210717
  Serious: Yes (Death)
  Sender: FDA-Public Use
  Company Number: US-PFIZER INC-2020171764

PATIENT
  Age: 66 Year
  Sex: Female

DRUGS (1)
  1. PREMARIN [Suspect]
     Active Substance: ESTROGENS, CONJUGATED
     Indication: ATROPHIC VULVOVAGINITIS
     Dosage: 1 G, (APPLY 1 GM CREAM INTRAVAGINALLY AT BEDTIME TWICE WEEKLY)
     Route: 067

REACTIONS (2)
  - Off label use [Unknown]
  - Sarcoidosis [Fatal]

NARRATIVE: CASE EVENT DATE: 20210414
